FAERS Safety Report 14098141 (Version 2)
Quarter: 2017Q4

REPORT INFORMATION
  Report Type: Report from Study
  Country: US (occurrence: US)
  Receive Date: 20171017
  Receipt Date: 20171212
  Transmission Date: 20180321
  Serious: Yes (Hospitalization, Other)
  Sender: FDA-Public Use
  Company Number: US-B.I. PHARMACEUTICALS,INC./RIDGEFIELD-2016-BI-21515BP

PATIENT
  Sex: Male

DRUGS (3)
  1. OFEV [Suspect]
     Active Substance: NINTEDANIB
     Indication: IDIOPATHIC PULMONARY FIBROSIS
     Route: 048
     Dates: start: 20160404
  2. OFEV [Suspect]
     Active Substance: NINTEDANIB
     Route: 048
  3. METFORMIN [Suspect]
     Active Substance: METFORMIN HYDROCHLORIDE
     Indication: PRODUCT USED FOR UNKNOWN INDICATION
     Route: 065

REACTIONS (13)
  - Encephalitis [Unknown]
  - Cataract [Unknown]
  - Disease complication [Unknown]
  - Hernia [Unknown]
  - Cough [Unknown]
  - Visual impairment [Unknown]
  - Disorientation [Unknown]
  - Diarrhoea [Unknown]
  - Liver function test increased [Unknown]
  - Productive cough [Unknown]
  - Constipation [Unknown]
  - Dyspnoea [Unknown]
  - Dyspnoea exertional [Unknown]
